FAERS Safety Report 23382257 (Version 1)
Quarter: 2024Q1

REPORT INFORMATION
  Report Type: Spontaneous
  Country: TR (occurrence: TR)
  Receive Date: 20240109
  Receipt Date: 20240109
  Transmission Date: 20240410
  Serious: Yes (Other)
  Sender: FDA-Public Use
  Company Number: TR-002147023-NVSC2023TR278634

PATIENT
  Age: 28 Year
  Sex: Male

DRUGS (6)
  1. CYCLOSPORINE [Suspect]
     Active Substance: CYCLOSPORINE
     Indication: Pyoderma gangrenosum
     Dosage: UNK
     Route: 065
  2. INFLIXIMAB [Suspect]
     Active Substance: INFLIXIMAB
     Indication: Behcet^s syndrome
     Dosage: UNK
     Route: 065
  3. COLCHICINE [Concomitant]
     Active Substance: COLCHICINE
     Indication: Behcet^s syndrome
     Dosage: UNK
     Route: 065
  4. METHYLPREDNISOLONE [Concomitant]
     Active Substance: METHYLPREDNISOLONE
     Indication: Behcet^s syndrome
     Dosage: UNK
     Route: 065
  5. HUMAN IMMUNOGLOBULIN G [Concomitant]
     Active Substance: HUMAN IMMUNOGLOBULIN G
     Indication: Behcet^s syndrome
     Dosage: UNK
     Route: 065
  6. AZATHIOPRINE [Concomitant]
     Active Substance: AZATHIOPRINE
     Indication: Behcet^s syndrome
     Dosage: UNK
     Route: 065

REACTIONS (1)
  - Behcet^s syndrome [Unknown]
